FAERS Safety Report 5019116-4 (Version None)
Quarter: 2006Q2

REPORT INFORMATION
  Report Type: 
  Country: None (occurrence: None)
  Receive Date: 20060531
  Receipt Date: 20060516
  Transmission Date: 20061013
  Serious: Yes (Hospitalization)
  Sender: FDA-Public Use
  Company Number: 225180

PATIENT
  Age: 63 Year
  Sex: Male
  Weight: 61.2 kg

DRUGS (6)
  1. BEVACIZUMAB (BEVACIZUMAB) PWDR + SOLVENT, INFUSION SOLN, 100MG [Suspect]
     Indication: NON-SMALL CELL LUNG CANCER
     Dosage: 920 MG, Q3W, INTRAVENOUS
     Route: 042
     Dates: start: 20060511, end: 20060511
  2. GEMZAR [Suspect]
     Indication: NON-SMALL CELL LUNG CANCER
     Dosage: 160 MG, INTRAVENOUS
     Route: 042
     Dates: start: 20060511, end: 20060511
  3. CARBOPLATIN [Suspect]
     Indication: NON-SMALL CELL LUNG CANCER
     Dosage: 490 MG, INTRAVENOUS
     Route: 042
     Dates: start: 20060511, end: 20060511
  4. TYCO #3 (ACETAMINOPHEN, CODEINE PHOSPHATE) [Concomitant]
  5. ZOFRAN [Concomitant]
  6. LOMOTIL [Concomitant]

REACTIONS (19)
  - BLOOD PRESSURE DECREASED [None]
  - BLOOD SODIUM INCREASED [None]
  - BODY TEMPERATURE DECREASED [None]
  - CARDIAC INDEX DECREASED [None]
  - CHEST DISCOMFORT [None]
  - CHEST PAIN [None]
  - DIZZINESS [None]
  - ELECTROCARDIOGRAM ST SEGMENT [None]
  - ELECTROCARDIOGRAM ST SEGMENT ELEVATION [None]
  - FALL [None]
  - FIBRIN D DIMER INCREASED [None]
  - HAEMATOCRIT DECREASED [None]
  - HAEMOGLOBIN DECREASED [None]
  - HYPERHIDROSIS [None]
  - LUNG NEOPLASM [None]
  - NAUSEA [None]
  - PULMONARY EMBOLISM [None]
  - RESPIRATORY RATE INCREASED [None]
  - RETCHING [None]
